FAERS Safety Report 6391653-X (Version None)
Quarter: 2009Q4

REPORT INFORMATION
  Report Type: 
  Country: None (occurrence: None)
  Receive Date: 20091007
  Receipt Date: 20090928
  Transmission Date: 20100525
  Serious: Yes (Other)
  Sender: FDA-Public Use
  Company Number: FR-BRACCO-000299

PATIENT
  Age: 76 Year
  Sex: Male

DRUGS (1)
  1. IOPAMIDOL [Suspect]
     Indication: SPINAL MYELOGRAM
     Route: 037
     Dates: start: 20090707, end: 20090707

REACTIONS (1)
  - MENINGITIS BACTERIAL [None]
